FAERS Safety Report 7525107-1 (Version None)
Quarter: 2011Q2

REPORT INFORMATION
  Report Type: 
  Country: None (occurrence: None)
  Receive Date: 20110606
  Receipt Date: 20091109
  Transmission Date: 20111010
  Serious: Yes (Other)
  Sender: FDA-Public Use
  Company Number: US-BAYER-2011-006756

PATIENT
  Sex: Female
  Weight: 61.224 kg

DRUGS (25)
  1. TRASYLOL [Suspect]
     Indication: PULMONARY VALVE REPLACEMENT
     Dosage: TEST DOSE 1ML
     Route: 042
     Dates: start: 20041119, end: 20041119
  2. TRASYLOL [Suspect]
     Dosage: 200 ML, LOADING DOSE
     Route: 042
     Dates: start: 20041119, end: 20041119
  3. HEPARIN [Concomitant]
     Dosage: 45000 UNITS
     Route: 042
     Dates: start: 20041119
  4. RED BLOOD CELLS [Concomitant]
     Dosage: 7 U, UNK
     Dates: start: 20041119
  5. RED BLOOD CELLS [Concomitant]
     Dosage: 2 U, UNK
     Dates: start: 20041129
  6. ZINACEF [Concomitant]
     Dosage: 1.5 G, UNK
     Route: 042
     Dates: start: 20041119
  7. BEXTRA [Concomitant]
     Route: 048
  8. DIGOXIN [Concomitant]
     Route: 048
  9. LIDOCAINE [Concomitant]
     Dosage: UNK
     Route: 042
     Dates: start: 20041119
  10. ATENOLOL [Concomitant]
     Route: 048
  11. PROTAMINE SULFATE [Concomitant]
     Dosage: 250 MG, UNK
     Route: 042
     Dates: start: 20041119
  12. CALCIUM CHLORIDE [Concomitant]
     Dosage: 1 G, UNK
     Route: 042
     Dates: start: 20041119
  13. SODIUM BICARBONATE [Concomitant]
     Dosage: UNK
     Route: 042
     Dates: start: 20041119
  14. VERSED [Concomitant]
     Dosage: 3 MG, UNK
     Route: 042
     Dates: start: 20041119, end: 20041119
  15. DILANTIN [Concomitant]
     Dosage: UNK
     Dates: start: 20041123
  16. TRASYLOL [Suspect]
     Dosage: 50 CC/HR AFTER TEST AND LOADING DOSE
     Route: 042
     Dates: start: 20041119
  17. DOPAMINE HCL [Concomitant]
     Dosage: UNK
     Route: 041
     Dates: start: 20041119
  18. DOPAMINE HCL [Concomitant]
     Dosage: DOPAMINE DRIP TITRATED
     Route: 042
     Dates: start: 20041119, end: 20041119
  19. FRESH FROZEN PLASMA [Concomitant]
     Dosage: 1500 ML, UNK
     Dates: start: 20041119
  20. FACTOR VII [Concomitant]
     Dosage: 4.8 MG, UNK
     Route: 042
     Dates: start: 20041119
  21. ZYRTEC [Concomitant]
     Route: 048
  22. PROTAMINE SULFATE [Concomitant]
     Dosage: 350 MG, UNK
     Route: 042
     Dates: start: 20041119, end: 20041119
  23. ANCEF [Concomitant]
     Dosage: 2 G, UNK
     Route: 042
     Dates: start: 20041119
  24. SODIUM NITROPRUSSIDE [Concomitant]
     Dosage: TITRATED
     Route: 042
     Dates: start: 20041119, end: 20041119
  25. SOLU-MEDROL [Concomitant]
     Dosage: UNK
     Route: 042
     Dates: start: 20041119

REACTIONS (9)
  - UNEVALUABLE EVENT [None]
  - ANXIETY [None]
  - EMOTIONAL DISORDER [None]
  - RENAL INJURY [None]
  - STRESS [None]
  - RENAL IMPAIRMENT [None]
  - FEAR [None]
  - RENAL FAILURE [None]
  - PAIN [None]
